FAERS Safety Report 5084646-6 (Version None)
Quarter: 2006Q3

REPORT INFORMATION
  Report Type: 
  Country: None (occurrence: None)
  Receive Date: 20060818
  Receipt Date: 20060818
  Transmission Date: 20061208
  Serious: No
  Sender: FDA-Public Use
  Company Number: None

PATIENT
  Age: 49 Year
  Sex: Female
  Weight: 79 kg

DRUGS (1)
  1. VALPROIC ACID [Suspect]
     Dosage: 1000MG   AMHS   PO
     Route: 048

REACTIONS (2)
  - AMMONIA INCREASED [None]
  - PLATELET COUNT DECREASED [None]
